FAERS Safety Report 9422001 (Version 1)
Quarter: 2013Q3

REPORT INFORMATION
  Report Type: Spontaneous
  Country: US (occurrence: None)
  Receive Date: 20130725
  Receipt Date: 20130725
  Transmission Date: 20140515
  Serious: Yes (Other)
  Sender: FDA-Public Use
  Company Number: None

PATIENT
  Sex: Female
  Weight: 49.44 kg

DRUGS (5)
  1. PRAVASTATIN [Suspect]
     Indication: HYPERCHOLESTEROLAEMIA
     Route: 048
     Dates: start: 201210, end: 20130523
  2. RENITIDINE [Concomitant]
  3. LISINOPRIL [Concomitant]
  4. DEXALENT [Concomitant]
  5. CHOLYSTYRAMINE [Concomitant]

REACTIONS (3)
  - Blood cholesterol increased [None]
  - High density lipoprotein increased [None]
  - Product substitution issue [None]
